FAERS Safety Report 17495880 (Version 1)
Quarter: 2020Q1

REPORT INFORMATION
  Report Type: Spontaneous
  Country: PL (occurrence: PL)
  Receive Date: 20200304
  Receipt Date: 20200304
  Transmission Date: 20200409
  Serious: Yes (Hospitalization)
  Sender: FDA-Public Use
  Company Number: NVSC2020PL059826

PATIENT
  Age: 52 Year
  Sex: Female

DRUGS (2)
  1. DULOXETINE. [Interacting]
     Active Substance: DULOXETINE
     Indication: ANXIETY DISORDER
     Route: 065
  2. METOPROLOL. [Suspect]
     Active Substance: METOPROLOL
     Indication: SINUS TACHYCARDIA
     Dosage: 100 MG, QD
     Route: 065

REACTIONS (7)
  - Reflux gastritis [Unknown]
  - Loss of consciousness [Unknown]
  - Abdominal pain upper [Unknown]
  - Bradycardia [Unknown]
  - Dyspepsia [Unknown]
  - Drug interaction [Unknown]
  - Syncope [Unknown]
